FAERS Safety Report 20742071 (Version 4)
Quarter: 2022Q4

REPORT INFORMATION
  Report Type: Report from Study
  Country: CA (occurrence: CA)
  Receive Date: 20220423
  Receipt Date: 20221118
  Transmission Date: 20230113
  Serious: Yes (Hospitalization, Other)
  Sender: FDA-Public Use
  Company Number: CA-NOVARTISPH-PHHY2019CA054447

PATIENT
  Sex: Male

DRUGS (20)
  1. ILARIS [Suspect]
     Active Substance: CANAKINUMAB
     Indication: Familial cold autoinflammatory syndrome
     Dosage: 75 MG, (EVERY 8 WEEKS)
     Route: 058
     Dates: start: 20190304
  2. ILARIS [Suspect]
     Active Substance: CANAKINUMAB
     Dosage: UNK (37 OT EVERY 8 WEEKS)
     Route: 058
  3. ILARIS [Suspect]
     Active Substance: CANAKINUMAB
     Dosage: UNK (37 OT EVERY 8 WEEKS)
     Route: 058
     Dates: start: 20190624
  4. ILARIS [Suspect]
     Active Substance: CANAKINUMAB
     Dosage: UNK (37 OT EVERY 8 WEEKS)
     Route: 058
     Dates: start: 20190819
  5. ILARIS [Suspect]
     Active Substance: CANAKINUMAB
     Dosage: UNK (37 OT EVERY 8 WEEKS)
     Route: 058
     Dates: start: 20191017
  6. ILARIS [Suspect]
     Active Substance: CANAKINUMAB
     Dosage: UNK (37 OT EVERY 8 WEEKS)
     Route: 058
     Dates: start: 20191209
  7. ILARIS [Suspect]
     Active Substance: CANAKINUMAB
     Dosage: UNK (75 OT EVERY 8 WEEKS)
     Route: 058
     Dates: start: 20200203
  8. ILARIS [Suspect]
     Active Substance: CANAKINUMAB
     Dosage: 75 MG, EVERY 8 WEEKS
     Route: 058
     Dates: start: 20200402
  9. ILARIS [Suspect]
     Active Substance: CANAKINUMAB
     Dosage: 75 MG (EVERY 8 WEEKS)
     Route: 058
     Dates: start: 20200525
  10. ILARIS [Suspect]
     Active Substance: CANAKINUMAB
     Dosage: 75 MG (0.5 ML), EVERY 8 WEEKS
     Route: 058
     Dates: start: 20211015
  11. ILARIS [Suspect]
     Active Substance: CANAKINUMAB
     Dosage: UNK
     Route: 065
  12. ILARIS [Suspect]
     Active Substance: CANAKINUMAB
     Dosage: UNK
     Route: 065
     Dates: start: 20220404
  13. DEXAMETHASONE [Concomitant]
     Active Substance: DEXAMETHASONE
     Indication: Product used for unknown indication
     Dosage: UNK
     Route: 065
  14. IBUPROFEN [Concomitant]
     Active Substance: IBUPROFEN
     Indication: Product used for unknown indication
     Dosage: UNK
     Route: 065
  15. VENTOLIN [Concomitant]
     Active Substance: ALBUTEROL SULFATE
     Indication: Product used for unknown indication
     Dosage: UNK
     Route: 065
  16. RUPATADINE FUMARATE [Concomitant]
     Active Substance: RUPATADINE FUMARATE
     Indication: Product used for unknown indication
     Dosage: UNK
     Route: 065
  17. ATARAX [Concomitant]
     Active Substance: HYDROXYZINE HYDROCHLORIDE
     Indication: Product used for unknown indication
     Dosage: UNK
     Route: 065
  18. CETIRIZINE HYDROCHLORIDE [Concomitant]
     Active Substance: CETIRIZINE HYDROCHLORIDE
     Indication: Product used for unknown indication
     Dosage: UNK
     Route: 065
  19. LORATADINE [Concomitant]
     Active Substance: LORATADINE
     Indication: Product used for unknown indication
     Dosage: UNK
     Route: 065
  20. DIPHENHYDRAMINE [Concomitant]
     Active Substance: DIPHENHYDRAMINE
     Indication: Product used for unknown indication
     Dosage: UNK
     Route: 065

REACTIONS (19)
  - Laryngeal oedema [Unknown]
  - Cough [Unknown]
  - Nausea [Unknown]
  - Malaise [Unknown]
  - Vomiting [Unknown]
  - Influenza [Unknown]
  - Weight abnormal [Unknown]
  - Heart rate increased [Unknown]
  - Hypotension [Unknown]
  - Sunburn [Unknown]
  - Erythema [Unknown]
  - Skin exfoliation [Unknown]
  - Familial cold autoinflammatory syndrome [Unknown]
  - Pyrexia [Unknown]
  - Rash [Unknown]
  - Ocular hyperaemia [Unknown]
  - Fatigue [Unknown]
  - Headache [Unknown]
  - Condition aggravated [Unknown]

NARRATIVE: CASE EVENT DATE: 20220101
